FAERS Safety Report 21631250 (Version 1)
Quarter: 2022Q4

REPORT INFORMATION
  Report Type: Spontaneous
  Country: US (occurrence: US)
  Receive Date: 20221123
  Receipt Date: 20221123
  Transmission Date: 20230112
  Serious: No
  Sender: FDA-Public Use
  Company Number: US-BRISTOL-MYERS SQUIBB COMPANY-2022-139407

PATIENT
  Age: 69 Year
  Sex: Male
  Weight: 86.18 kg

DRUGS (4)
  1. ELIQUIS [Suspect]
     Active Substance: APIXABAN
     Indication: Thrombosis
     Dosage: FREQ:  1 TABLET TWICE A DAY?ELIQUIS 5MG/2.5MG-(FEBRUARY OR MARCH OF 2022)
     Route: 048
     Dates: start: 2022
  2. ELIQUIS [Suspect]
     Active Substance: APIXABAN
     Dosage: FREQ:  1 TABLET TWICE A DAY
     Route: 065
  3. LIPITOR [Concomitant]
     Active Substance: ATORVASTATIN CALCIUM
     Dosage: LIPITOR10MG-  1 A DAY  (DATE UNKNOWN)
  4. ALLOPURINOL [Concomitant]
     Active Substance: ALLOPURINOL
     Dosage: ALLOPURINOL 300 MG- 1 A DAY FOR GOUT (20 YEARS)

REACTIONS (1)
  - Intentional product use issue [Unknown]
